FAERS Safety Report 25019483 (Version 3)
Quarter: 2025Q1

REPORT INFORMATION
  Report Type: Report from Study
  Country: US (occurrence: US)
  Receive Date: 20250227
  Receipt Date: 20250311
  Transmission Date: 20250408
  Serious: Yes (Hospitalization)
  Sender: ALEXION PHARMACEUTICALS
  Company Number: US-AstraZeneca-CH-00815180A

PATIENT

DRUGS (2)
  1. ULTOMIRIS [Suspect]
     Active Substance: RAVULIZUMAB-CWVZ
     Route: 065
  2. MESTINON [Concomitant]
     Active Substance: PYRIDOSTIGMINE BROMIDE
     Route: 065

REACTIONS (11)
  - Dyspnoea [Unknown]
  - Asthenia [Unknown]
  - Scar [Unknown]
  - Pain [Unknown]
  - Gait disturbance [Unknown]
  - Gastrointestinal disorder [Unknown]
  - Skin atrophy [Unknown]
  - Heart rate increased [Recovered/Resolved]
  - Condition aggravated [Unknown]
  - Gastrointestinal infection [Unknown]
  - Procedural complication [Unknown]
